FAERS Safety Report 7618566-7 (Version None)
Quarter: 2011Q3

REPORT INFORMATION
  Report Type: 
  Country: None (occurrence: None)
  Receive Date: 20110718
  Receipt Date: 20110712
  Transmission Date: 20111222
  Serious: Yes (Hospitalization, Other)
  Sender: FDA-Public Use
  Company Number: DK-PFIZER INC-2011158083

PATIENT
  Age: 78 Year
  Sex: Male
  Weight: 57 kg

DRUGS (11)
  1. FUROSEMIDE [Concomitant]
  2. COZAAR [Concomitant]
  3. ATORVASTATIN CALCIUM [Suspect]
     Indication: HYPERCHOLESTEROLAEMIA
     Dosage: 40 MG, 1X/DAY
     Route: 048
     Dates: end: 20110705
  4. GLEEVEC [Concomitant]
  5. MAGNYL ^DAK^ [Concomitant]
  6. ONGLYZA [Concomitant]
  7. ARANESP [Concomitant]
  8. INSULATARD [Concomitant]
  9. BETOLVEX [Concomitant]
  10. METOPROLOL SUCCINATE [Concomitant]
  11. ALLOPURINOL [Concomitant]

REACTIONS (10)
  - MYOSITIS [None]
  - NEPHROPATHY [None]
  - TROPONIN INCREASED [None]
  - CHEST PAIN [None]
  - FATIGUE [None]
  - ELECTROCARDIOGRAM ABNORMAL [None]
  - CARDIOMEGALY [None]
  - PLEURAL DISORDER [None]
  - MUSCULAR WEAKNESS [None]
  - ANGINA PECTORIS [None]
